FAERS Safety Report 11253780 (Version 1)
Quarter: 2015Q3

REPORT INFORMATION
  Report Type: Spontaneous
  Country: US (occurrence: None)
  Receive Date: 20150708
  Receipt Date: 20150708
  Transmission Date: 20151125
  Serious: No
  Sender: FDA-Public Use
  Company Number: None

PATIENT
  Age: 58 Year
  Sex: Female

DRUGS (2)
  1. BOSULIF [Suspect]
     Active Substance: BOSUTINIB MONOHYDRATE
     Indication: CHRONIC MYELOID LEUKAEMIA
     Route: 048
     Dates: end: 20150702
  2. LEVOTHYROXIN [Suspect]
     Active Substance: LEVOTHYROXINE

REACTIONS (2)
  - Renal impairment [None]
  - Renal function test abnormal [None]

NARRATIVE: CASE EVENT DATE: 20150617
